FAERS Safety Report 6072199-5 (Version None)
Quarter: 2009Q1

REPORT INFORMATION
  Report Type: 
  Country: None (occurrence: None)
  Receive Date: 20090206
  Receipt Date: 20090206
  Transmission Date: 20090719
  Serious: Yes (Disabling, Other)
  Sender: FDA-Public Use
  Company Number: None

PATIENT
  Age: 17 Year
  Sex: Male
  Weight: 81.6475 kg

DRUGS (1)
  1. ACCUTANE [Suspect]

REACTIONS (4)
  - GASTROINTESTINAL DISORDER [None]
  - GASTROOESOPHAGEAL REFLUX DISEASE [None]
  - PAIN [None]
  - TYPE 2 DIABETES MELLITUS [None]
